FAERS Safety Report 4415972-9 (Version None)
Quarter: 2004Q3

REPORT INFORMATION
  Report Type: 
  Country: None (occurrence: None)
  Receive Date: 20040804
  Receipt Date: 20040804
  Transmission Date: 20050211
  Serious: Yes (Other)
  Sender: FDA-Public Use
  Company Number: None

PATIENT
  Age: 23 Year
  Sex: Female

DRUGS (7)
  1. ZYPREXA [Suspect]
     Indication: ANXIETY
     Dosage: 3 3 TIMES ORAL
     Route: 048
     Dates: start: 20040120, end: 20040130
  2. ZYPREXA [Suspect]
     Indication: DEPRESSION
     Dosage: 3 3 TIMES ORAL
     Route: 048
     Dates: start: 20040120, end: 20040130
  3. ZYPREXA [Suspect]
     Indication: FEELING ABNORMAL
     Dosage: 3 3 TIMES ORAL
     Route: 048
     Dates: start: 20040120, end: 20040130
  4. CLONAZEPAM [Concomitant]
  5. PAXIL [Concomitant]
  6. AMBIEN [Concomitant]
  7. BUSPAR [Concomitant]

REACTIONS (3)
  - BLOOD CHOLESTEROL INCREASED [None]
  - OBESITY [None]
  - WEIGHT INCREASED [None]
